FAERS Safety Report 5900384-9 (Version None)
Quarter: 2008Q3

REPORT INFORMATION
  Report Type: 
  Country: None (occurrence: None)
  Receive Date: 20080926
  Receipt Date: 20080916
  Transmission Date: 20090109
  Serious: Yes (Hospitalization)
  Sender: FDA-Public Use
  Company Number: FR-PFIZER INC-2006150269

PATIENT
  Age: 83 Year
  Sex: Female
  Weight: 55 kg

DRUGS (5)
  1. ALDACTONE [Suspect]
     Route: 048
  2. ENALAPRIL MALEATE [Interacting]
     Route: 048
  3. POTASSIUM CHLORIDE [Interacting]
     Dosage: TEXT:2 DOSE FORM-FREQ:DAILY
     Route: 048
  4. LASIX [Interacting]
     Route: 048
  5. LEVOTHYROX [Concomitant]
     Dosage: DAILY DOSE:100MCG-FREQ:DAILY
     Route: 048

REACTIONS (3)
  - DRUG INTERACTION [None]
  - HYPERKALAEMIA [None]
  - RENAL FAILURE ACUTE [None]
